FAERS Safety Report 8812742 (Version 1)
Quarter: 2012Q4

REPORT INFORMATION
  Report Type: 
  Country: US (occurrence: US)
  Receive Date: 20120927
  Receipt Date: 20120927
  Transmission Date: 20130627
  Serious: Yes (Other)
  Sender: FDA-Public Use
  Company Number: US-JNJFOC-20120813050

PATIENT
  Age: 59 None
  Sex: Male

DRUGS (3)
  1. LEVAQUIN [Suspect]
     Indication: PROSTATITIS
     Route: 048
     Dates: start: 20031029
  2. FLOMAX [Suspect]
     Indication: PROSTATITIS
     Route: 048
     Dates: start: 20031029
  3. FLOMAX [Suspect]
     Indication: PROSTATIC SPECIFIC ANTIGEN INCREASED
     Route: 048
     Dates: start: 20031029

REACTIONS (2)
  - Meniscus injury [Unknown]
  - Condition aggravated [Unknown]
